FAERS Safety Report 13737546 (Version 1)
Quarter: 2017Q3

REPORT INFORMATION
  Report Type: Spontaneous
  Country: AT (occurrence: AT)
  Receive Date: 20170710
  Receipt Date: 20170710
  Transmission Date: 20171127
  Serious: Yes (Other)
  Sender: FDA-Public Use
  Company Number: AT-SA-2017SA118317

PATIENT
  Sex: Female

DRUGS (6)
  1. THYREX [Concomitant]
     Active Substance: LEVOTHYROXINE SODIUM
     Dosage: DOSAGE TEXT:1/2/0
     Route: 065
  2. LEVETIRACETAM. [Concomitant]
     Active Substance: LEVETIRACETAM
     Route: 065
  3. CONCOR [Concomitant]
     Active Substance: BISOPROLOL FUMARATE
     Dosage: DOSAGE TEXT:1/2/0/0
     Route: 065
  4. LOVENOX [Suspect]
     Active Substance: ENOXAPARIN SODIUM
     Route: 051
     Dates: start: 201705
  5. LEXOTANIL [Concomitant]
     Active Substance: BROMAZEPAM
     Dosage: DOSAGE TEXT:0/0/1/2
     Route: 065
  6. DIGIMERCK [Concomitant]
     Active Substance: DIGITOXIN
     Dosage: DOSAGE TEXT:1/0/0
     Route: 065

REACTIONS (2)
  - Dementia [Not Recovered/Not Resolved]
  - Confusional state [Not Recovered/Not Resolved]
